FAERS Safety Report 24022728 (Version 2)
Quarter: 2024Q3

REPORT INFORMATION
  Report Type: Report from Study
  Country: IL (occurrence: IL)
  Receive Date: 20240627
  Receipt Date: 20240710
  Transmission Date: 20241017
  Serious: No
  Sender: ROCHE
  Company Number: IL-ROCHE-3450984

PATIENT
  Age: 86 Year
  Sex: Female
  Weight: 62.0 kg

DRUGS (6)
  1. ALECTINIB [Suspect]
     Active Substance: ALECTINIB
     Indication: Non-small cell lung cancer metastatic
     Dosage: PRIOR INFUSION WAS ON 01/NOV/2020,600MG, TWICE A DAY
     Route: 048
     Dates: start: 20211116
  2. AMLODIPINE MALEATE [Concomitant]
     Active Substance: AMLODIPINE MALEATE
     Indication: Hypertension
     Route: 048
     Dates: start: 20170923
  3. BISOPROLOL FUMARATE [Concomitant]
     Active Substance: BISOPROLOL FUMARATE
     Route: 048
     Dates: start: 20200921
  4. NEXIUM [Concomitant]
     Active Substance: ESOMEPRAZOLE MAGNESIUM
     Indication: Gastrooesophageal reflux disease
     Route: 048
     Dates: start: 20200921
  5. TRITACE COMP [Concomitant]
     Indication: Blood pressure measurement
     Route: 048
     Dates: start: 20170923
  6. NORMALAX [MACROGOL 3350] [Concomitant]
     Indication: Constipation
     Dosage: 999
     Route: 048

REACTIONS (1)
  - Oedema peripheral [Recovered/Resolved]

NARRATIVE: CASE EVENT DATE: 20220412
